FAERS Safety Report 8302477-8 (Version None)
Quarter: 2012Q2

REPORT INFORMATION
  Report Type: 
  Country: None (occurrence: None)
  Receive Date: 20120420
  Receipt Date: 20120411
  Transmission Date: 20120825
  Serious: Yes (Hospitalization)
  Sender: FDA-Public Use
  Company Number: US-GILEAD-2012-0052042

PATIENT
  Sex: Male

DRUGS (8)
  1. ALBUTEROL [Concomitant]
     Indication: DYSPNOEA
     Dosage: UNK
     Dates: start: 20120110
  2. ASPIRIN [Concomitant]
  3. HYPERTONIC SALINE SOLUTION [Concomitant]
     Indication: BRONCHIECTASIS
     Dosage: UNK
  4. ALBUTEROL SULFATE [Concomitant]
     Indication: PULMONARY FUNCTION TEST
     Dosage: UNK
     Dates: start: 20111004
  5. DUONEB [Concomitant]
  6. ACETYLCYSTEINE [Concomitant]
  7. AZTREONAM [Suspect]
     Indication: BRONCHIECTASIS
     Dosage: 75 MG, TID
     Route: 055
     Dates: start: 20111018, end: 20120306
  8. COMBIVENT [Concomitant]
     Indication: BRONCHIECTASIS
     Dosage: UNK

REACTIONS (3)
  - DYSPNOEA [None]
  - SPUTUM INCREASED [None]
  - COUGH [None]
